FAERS Safety Report 15518187 (Version 3)
Quarter: 2019Q3

REPORT INFORMATION
  Report Type: Spontaneous
  Country: US (occurrence: US)
  Receive Date: 20181017
  Receipt Date: 20190925
  Transmission Date: 20191004
  Serious: Yes (Hospitalization)
  Sender: FDA-Public Use
  Company Number: US-JNJFOC-20181022469

PATIENT
  Age: 54 Year
  Sex: Male
  Weight: 97.33 kg

DRUGS (2)
  1. INVOKANA [Suspect]
     Active Substance: CANAGLIFLOZIN
     Route: 048
     Dates: start: 20150912
  2. INVOKANA [Suspect]
     Active Substance: CANAGLIFLOZIN
     Indication: TYPE 2 DIABETES MELLITUS
     Route: 048

REACTIONS (10)
  - Wound dehiscence [Recovering/Resolving]
  - Limb amputation [Unknown]
  - Sepsis [Recovered/Resolved]
  - Necrotising fasciitis [Recovering/Resolving]
  - Gas gangrene [Recovering/Resolving]
  - Groin pain [Recovered/Resolved]
  - Diabetes mellitus inadequate control [Recovering/Resolving]
  - Diabetic foot infection [Recovering/Resolving]
  - Osteomyelitis acute [Recovering/Resolving]
  - Acute kidney injury [Recovered/Resolved]

NARRATIVE: CASE EVENT DATE: 201609
